FAERS Safety Report 15415353 (Version 1)
Quarter: 2018Q3

REPORT INFORMATION
  Report Type: Spontaneous
  Country: US (occurrence: US)
  Receive Date: 20180921
  Receipt Date: 20180921
  Transmission Date: 20181010
  Serious: No
  Sender: FDA-Public Use
  Company Number: US-009507513-1809USA007654

PATIENT
  Age: 74 Year
  Sex: Female

DRUGS (9)
  1. OXYBUTYNIN. [Concomitant]
     Active Substance: OXYBUTYNIN CHLORIDE
  2. PRAVASTATIN. [Concomitant]
     Active Substance: PRAVASTATIN
  3. METOPROLOL. [Concomitant]
     Active Substance: METOPROLOL
  4. BLACK COHOSH [Concomitant]
     Active Substance: BLACK COHOSH
  5. PREMARIN [Concomitant]
     Active Substance: ESTROGENS, CONJUGATED
  6. JANUVIA [Suspect]
     Active Substance: SITAGLIPTIN PHOSPHATE
     Indication: BLOOD GLUCOSE ABNORMAL
     Dosage: HALF (100MG) TABLET, DAILY
     Route: 048
  7. JANUVIA [Suspect]
     Active Substance: SITAGLIPTIN PHOSPHATE
     Dosage: UNK
     Route: 048
     Dates: start: 201809
  8. AMLODIPINE BESYLATE. [Concomitant]
     Active Substance: AMLODIPINE BESYLATE
  9. LOSARTAN. [Concomitant]
     Active Substance: LOSARTAN

REACTIONS (2)
  - Cystitis [Not Recovered/Not Resolved]
  - Wrong technique in product usage process [Unknown]

NARRATIVE: CASE EVENT DATE: 200609
